FAERS Safety Report 12258259 (Version 4)
Quarter: 2016Q3

REPORT INFORMATION
  Report Type: Spontaneous
  Country: US (occurrence: US)
  Receive Date: 20160412
  Receipt Date: 20160715
  Transmission Date: 20161109
  Serious: Yes (Hospitalization)
  Sender: FDA-Public Use
  Company Number: US-PFIZER INC-2016207325

PATIENT
  Age: 56 Year
  Sex: Female

DRUGS (1)
  1. XELJANZ [Suspect]
     Active Substance: TOFACITINIB CITRATE
     Indication: RHEUMATOID ARTHRITIS
     Dosage: 5 MG, 2X/DAY

REACTIONS (7)
  - Pancreatitis acute [Unknown]
  - Abdominal pain upper [Unknown]
  - Peripheral swelling [Recovered/Resolved]
  - Arthralgia [Unknown]
  - Peripheral swelling [Unknown]
  - Hypoaesthesia [Unknown]
  - Condition aggravated [Unknown]

NARRATIVE: CASE EVENT DATE: 20160407
